FAERS Safety Report 25331476 (Version 3)
Quarter: 2025Q3

REPORT INFORMATION
  Report Type: Spontaneous
  Country: US (occurrence: US)
  Receive Date: 20250519
  Receipt Date: 20250701
  Transmission Date: 20251020
  Serious: Yes (Other)
  Sender: PFIZER
  Company Number: US-PFIZER INC-202500103433

PATIENT
  Age: 47 Year
  Sex: Female

DRUGS (1)
  1. LORBRENA [Suspect]
     Active Substance: LORLATINIB
     Dosage: 75 MG, 1X/DAY (25 MG, TAKE 3 TABLETS ONCE DAILY WITH OR WITHOUT FOOD)
     Route: 048

REACTIONS (1)
  - Metastases to central nervous system [Unknown]
